FAERS Safety Report 5277934-1 (Version None)
Quarter: 2007Q1

REPORT INFORMATION
  Report Type: 
  Country: None (occurrence: None)
  Receive Date: 20070327
  Receipt Date: 20070315
  Transmission Date: 20070707
  Serious: Yes (Other)
  Sender: FDA-Public Use
  Company Number: US-PFIZER INC-2007022848

PATIENT
  Sex: Male
  Weight: 86.2 kg

DRUGS (13)
  1. CHANTIX [Suspect]
     Indication: SMOKING CESSATION THERAPY
  2. NITROGLYCERIN [Concomitant]
  3. INTERFERON BETA [Concomitant]
     Route: 030
  4. DICLOFENAC SODIUM [Concomitant]
  5. TRAZODONE HCL [Concomitant]
  6. ZOCOR [Concomitant]
  7. FLUOXETINE HCL [Concomitant]
  8. PROTONIX [Concomitant]
  9. DETROL [Concomitant]
  10. BACLOFEN [Concomitant]
  11. ISOSORBIDE MONONITRATE [Concomitant]
  12. PLAVIX [Concomitant]
  13. METOPROLOL SUCCINATE [Concomitant]

REACTIONS (1)
  - RENAL FAILURE CHRONIC [None]
